FAERS Safety Report 9056852 (Version 1)
Quarter: 2013Q1

REPORT INFORMATION
  Report Type: Spontaneous
  Country: AU (occurrence: AU)
  Receive Date: 20130201
  Receipt Date: 20130201
  Transmission Date: 20140127
  Serious: Yes (Hospitalization)
  Sender: FDA-Public Use
  Company Number: AU-GLAXOSMITHKLINE-B0547516A

PATIENT
  Age: 55 Year
  Sex: Female

DRUGS (5)
  1. QUILONUM [Suspect]
     Indication: PRODUCT USED FOR UNKNOWN INDICATION
     Dosage: 900MG PER DAY
     Route: 065
  2. SERETIDE [Suspect]
  3. VENTOLIN [Suspect]
  4. VITAMINS [Concomitant]
  5. FRUSEMIDE [Concomitant]

REACTIONS (6)
  - Diarrhoea [Not Recovered/Not Resolved]
  - Tremor [Unknown]
  - Amnesia [Unknown]
  - Weight increased [Unknown]
  - Drug administration error [Unknown]
  - Psychotic disorder [Unknown]
